FAERS Safety Report 15202020 (Version 1)
Quarter: 2018Q3

REPORT INFORMATION
  Report Type: Spontaneous
  Country: US (occurrence: US)
  Receive Date: 20180627
  Receipt Date: 20180627
  Transmission Date: 20181010
  Serious: Yes (Other)
  Sender: FDA-Public Use
  Company Number: None

PATIENT
  Age: 73 Year
  Sex: Female
  Weight: 60.78 kg

DRUGS (4)
  1. ESGIC (BUTABUTAL?APAP?CAFFEINE) [Concomitant]
  2. ESTRACE [Concomitant]
     Active Substance: ESTRADIOL
  3. REPATHA [Suspect]
     Active Substance: EVOLOCUMAB
     Indication: BLOOD CHOLESTEROL INCREASED
     Dosage: ?          QUANTITY:2 DF DOSAGE FORM;OTHER FREQUENCY:1X EVERY TWO WEEKS;OTHER ROUTE:AUTO INJECTION?
     Dates: start: 20180507, end: 20180507
  4. PLAVIX [Concomitant]
     Active Substance: CLOPIDOGREL BISULFATE

REACTIONS (10)
  - Fatigue [None]
  - Migraine [None]
  - Dizziness [None]
  - Hypoaesthesia [None]
  - Nausea [None]
  - Vomiting [None]
  - Abdominal discomfort [None]
  - Visual impairment [None]
  - Eye pain [None]
  - Asthenia [None]

NARRATIVE: CASE EVENT DATE: 20180513
